FAERS Safety Report 22098567 (Version 2)
Quarter: 2023Q1

REPORT INFORMATION
  Report Type: Spontaneous
  Country: CA (occurrence: CA)
  Receive Date: 20230315
  Receipt Date: 20230315
  Transmission Date: 20230418
  Serious: Yes (Other)
  Sender: FDA-Public Use
  Company Number: CA-PFIZER INC-202200629048

PATIENT
  Age: 29 Year
  Sex: Male

DRUGS (5)
  1. ABRILADA [Suspect]
     Active Substance: ADALIMUMAB-AFZB
     Indication: Hidradenitis
     Dosage: 1 DF, 160MG WEEK 0, 80MG WEEK 2, THEN 40MG Q 2 WEEKS, PREFILLED PEN
     Route: 058
  2. ABRILADA [Suspect]
     Active Substance: ADALIMUMAB-AFZB
     Dosage: 1 DF, 160MG WEEK 0, 80MG WEEK 2, THEN 40MG Q 2 WEEKS, PREFILLED PEN
     Route: 058
     Dates: start: 20220425, end: 2023
  3. ABRILADA [Suspect]
     Active Substance: ADALIMUMAB-AFZB
     Dosage: 1 DF, 160MG WEEK 0, 80MG WEEK 2, THEN 40MG Q 2 WEEKS
     Route: 058
  4. ABRILADA [Suspect]
     Active Substance: ADALIMUMAB-AFZB
     Dosage: 80 MG, WEEKLY, SINCE WEEK OF 06FEB2023
     Route: 058
     Dates: start: 202302
  5. PREDNISONE [Concomitant]
     Active Substance: PREDNISONE
     Dosage: 80 MG
     Dates: start: 20220415

REACTIONS (16)
  - Drainage [Recovering/Resolving]
  - Groin abscess [Not Recovered/Not Resolved]
  - Therapeutic response shortened [Unknown]
  - Off label use [Unknown]
  - Fatigue [Not Recovered/Not Resolved]
  - Nasopharyngitis [Not Recovered/Not Resolved]
  - Blood triglycerides increased [Unknown]
  - Blood uric acid increased [Unknown]
  - Cough [Not Recovered/Not Resolved]
  - Secretion discharge [Not Recovered/Not Resolved]
  - Nasal congestion [Not Recovered/Not Resolved]
  - Headache [Unknown]
  - Condition aggravated [Not Recovered/Not Resolved]
  - Inflammation [Unknown]
  - Eczema [Not Recovered/Not Resolved]
  - Nodule [Recovering/Resolving]

NARRATIVE: CASE EVENT DATE: 20220101
